FAERS Safety Report 16185948 (Version 1)
Quarter: 2019Q2

REPORT INFORMATION
  Report Type: Report from Study
  Country: US (occurrence: US)
  Receive Date: 20190411
  Receipt Date: 20190411
  Transmission Date: 20190711
  Serious: Yes (Death, Hospitalization, Other)
  Sender: FDA-Public Use
  Company Number: US-SA-2019SA100046

PATIENT
  Age: 64 Year
  Sex: Female
  Weight: 51.4 kg

DRUGS (7)
  1. GEMCITABINE HYDROCHLORIDE. [Suspect]
     Active Substance: GEMCITABINE HYDROCHLORIDE
     Dosage: 900 MG/M2, QCY
     Route: 042
     Dates: start: 20171011, end: 20171011
  2. IBUPROFEN. [Concomitant]
     Active Substance: IBUPROFEN
     Indication: ARTHRALGIA
     Dosage: UNK
     Dates: start: 20171019
  3. PARACETAMOL [Concomitant]
     Active Substance: ACETAMINOPHEN
     Indication: ARTHRALGIA
     Dosage: UNK
     Dates: start: 20171019
  4. GEMCITABINE HYDROCHLORIDE. [Suspect]
     Active Substance: GEMCITABINE HYDROCHLORIDE
     Indication: SOFT TISSUE SARCOMA
     Dosage: 900 MG/M2, QCY
     Route: 042
     Dates: start: 20180214, end: 20180214
  5. DOCETAXEL. [Suspect]
     Active Substance: DOCETAXEL
     Dosage: 75 MG/M2, QCY
     Route: 042
     Dates: start: 20171018, end: 20171018
  6. HYPROMELLOSE [Concomitant]
     Active Substance: HYPROMELLOSES
     Indication: EYE DISORDER
     Dosage: UNK
     Dates: start: 20171213
  7. DOCETAXEL. [Suspect]
     Active Substance: DOCETAXEL
     Dosage: 75 MG/M2, QCY
     Route: 042
     Dates: start: 20180214, end: 20180214

REACTIONS (6)
  - Lower respiratory tract infection [Unknown]
  - Cough [Unknown]
  - Embolism [Not Recovered/Not Resolved]
  - Spindle cell sarcoma [Fatal]
  - Dyspnoea [Unknown]
  - Metastatic neoplasm [Fatal]

NARRATIVE: CASE EVENT DATE: 20180526
